FAERS Safety Report 8145983-1 (Version None)
Quarter: 2012Q1

REPORT INFORMATION
  Report Type: 
  Country: None (occurrence: None)
  Receive Date: 20120217
  Receipt Date: 20110513
  Transmission Date: 20120608
  Serious: No
  Sender: FDA-Public Use
  Company Number: US-ABBOTT-11P-163-0725435-00

PATIENT
  Sex: Female
  Weight: 102.15 kg

DRUGS (6)
  1. ASPIRIN [Concomitant]
     Dosage: AT BEDTIME
  2. PLAVIX [Concomitant]
     Indication: PRODUCT USED FOR UNKNOWN INDICATION
     Dosage: IN THE MORNING
  3. METOPROLOL TARTRATE [Concomitant]
     Indication: PRODUCT USED FOR UNKNOWN INDICATION
  4. SIMCOR [Suspect]
     Indication: HIGH DENSITY LIPOPROTEIN DECREASED
     Dosage: 1000/20 MG AT BEDTIME
     Dates: start: 20100501
  5. SIMCOR [Suspect]
     Indication: BLOOD TRIGLYCERIDES INCREASED
  6. ASPIRIN [Concomitant]
     Indication: PRODUCT USED FOR UNKNOWN INDICATION
     Dosage: AT BEDTIME

REACTIONS (2)
  - FLUSHING [None]
  - ERYTHEMA [None]
